FAERS Safety Report 20756245 (Version 1)
Quarter: 2022Q2

REPORT INFORMATION
  Report Type: Spontaneous
  Country: US (occurrence: None)
  Receive Date: 20220426
  Receipt Date: 20220426
  Transmission Date: 20220721
  Serious: Yes (Hospitalization)
  Sender: FDA-Public Use
  Company Number: None

PATIENT
  Age: 81 Year
  Sex: Female
  Weight: 89.9 kg

DRUGS (17)
  1. CANAGLIFLOZIN [Suspect]
     Active Substance: CANAGLIFLOZIN
     Indication: Diabetes mellitus
     Dosage: FREQUENCY : DAILY;?
     Route: 048
     Dates: start: 20211202, end: 20220409
  2. ARIPIPRAZOLE [Concomitant]
     Active Substance: ARIPIPRAZOLE
     Dates: start: 20211109, end: 20220409
  3. BUPROPION [Concomitant]
     Active Substance: BUPROPION
     Dates: start: 20211109, end: 20220409
  4. CITALOPRAM [Concomitant]
     Active Substance: CITALOPRAM HYDROBROMIDE
     Dates: start: 20211109, end: 20220409
  5. DULAGLUTIDE [Concomitant]
     Active Substance: DULAGLUTIDE
     Dates: start: 20211109, end: 20220409
  6. GLIPIZIDE [Concomitant]
     Active Substance: GLIPIZIDE
     Dates: start: 20211130, end: 20220409
  7. LAMOTRIGINE [Concomitant]
     Active Substance: LAMOTRIGINE
     Dates: start: 20211122, end: 20220409
  8. LEVOTHYROXINE [Concomitant]
     Active Substance: LEVOTHYROXINE
     Dates: start: 20211221, end: 20220409
  9. PIOGLITAZONE [Concomitant]
     Active Substance: PIOGLITAZONE
     Dates: start: 20211208, end: 20220409
  10. ROPINIROLE [Concomitant]
     Active Substance: ROPINIROLE
     Dates: start: 20220308, end: 20220409
  11. ROSUVASTATIN [Concomitant]
     Active Substance: ROSUVASTATIN
     Dates: start: 20220128, end: 20220409
  12. TEMAZEPAM [Concomitant]
     Active Substance: TEMAZEPAM
     Dates: start: 20211124, end: 20220409
  13. PREGABALIN [Concomitant]
     Active Substance: PREGABALIN
     Dates: start: 20211029, end: 20220409
  14. PANTOPRAZOLE [Concomitant]
     Active Substance: PANTOPRAZOLE
     Dates: start: 20211119, end: 20220409
  15. FOLIC ACID [Concomitant]
     Active Substance: FOLIC ACID
     Dates: start: 20211104, end: 20220409
  16. TRELEGY ELLIPTA [Concomitant]
     Active Substance: FLUTICASONE FUROATE\UMECLIDINIUM BROMIDE\VILANTEROL TRIFENATATE
     Dates: start: 20211208, end: 20220409
  17. ALENDRONATE [Concomitant]
     Active Substance: ALENDRONATE SODIUM
     Dates: start: 20220208, end: 20220409

REACTIONS (5)
  - Limb injury [None]
  - Femur fracture [None]
  - Fall [None]
  - Hypophagia [None]
  - Euglycaemic diabetic ketoacidosis [None]

NARRATIVE: CASE EVENT DATE: 20220411
